FAERS Safety Report 16317655 (Version 3)
Quarter: 2019Q4

REPORT INFORMATION
  Report Type: Spontaneous
  Country: US (occurrence: US)
  Receive Date: 20190516
  Receipt Date: 20191024
  Transmission Date: 20200122
  Serious: No
  Sender: FDA-Public Use
  Company Number: US-ELI_LILLY_AND_COMPANY-US201905003373

PATIENT
  Sex: Female
  Weight: 91 kg

DRUGS (3)
  1. HUMALOG [Suspect]
     Active Substance: INSULIN LISPRO
     Indication: GESTATIONAL DIABETES
     Dosage: 2 INTERNATIONAL UNIT, EACH MORNING (WITH BREAKFAST)
     Route: 058
     Dates: start: 20190504, end: 20190505
  2. PRENATAL VITAMINS ASCORBIC ACID;BETACAROTENE [Concomitant]
     Indication: PRODUCT USED FOR UNKNOWN INDICATION
  3. HUMALOG [Suspect]
     Active Substance: INSULIN LISPRO
     Dosage: 4 INTERNATIONAL UNIT, DAILY (WITH LUNCH)
     Route: 058
     Dates: start: 20190504, end: 20190505

REACTIONS (3)
  - Rash [Not Recovered/Not Resolved]
  - Maternal exposure during breast feeding [Recovered/Resolved]
  - Maternal exposure during pregnancy [Recovered/Resolved]

NARRATIVE: CASE EVENT DATE: 201905
